FAERS Safety Report 7616977-7 (Version None)
Quarter: 2011Q3

REPORT INFORMATION
  Report Type: 
  Country: None (occurrence: None)
  Receive Date: 20110718
  Receipt Date: 20110317
  Transmission Date: 20111222
  Serious: No
  Sender: FDA-Public Use
  Company Number: US-BIOGENIDEC-2011BI025740

PATIENT
  Sex: Female
  Weight: 73 kg

DRUGS (6)
  1. AMPYRA [Concomitant]
     Indication: BALANCE DISORDER
     Route: 048
     Dates: start: 20101110, end: 20101121
  2. TYSABRI [Suspect]
     Indication: MULTIPLE SCLEROSIS
     Route: 042
  3. POTASSIUM [Concomitant]
     Indication: PRODUCT USED FOR UNKNOWN INDICATION
  4. LASIX [Concomitant]
     Indication: PRODUCT USED FOR UNKNOWN INDICATION
  5. LISINOPRIL [Concomitant]
     Indication: PRODUCT USED FOR UNKNOWN INDICATION
  6. VITAMIN D [Concomitant]
     Indication: PRODUCT USED FOR UNKNOWN INDICATION

REACTIONS (7)
  - DYSPEPSIA [None]
  - ASTHENIA [None]
  - CONSTIPATION [None]
  - INSOMNIA [None]
  - BALANCE DISORDER [None]
  - NAUSEA [None]
  - PARAESTHESIA [None]
